FAERS Safety Report 6711588-X (Version None)
Quarter: 2010Q2

REPORT INFORMATION
  Report Type: 
  Country: None (occurrence: None)
  Receive Date: 20100504
  Receipt Date: 20100504
  Transmission Date: 20101027
  Serious: Yes (Other)
  Sender: FDA-Public Use
  Company Number: None

PATIENT
  Sex: Female
  Weight: 53.0709 kg

DRUGS (7)
  1. RIBAVIRIN [Suspect]
     Indication: HEPATITIS C
     Dosage: 2 CAPS -400MG- BID PO
     Route: 048
     Dates: start: 20100426
  2. PEGASYS [Suspect]
     Dosage: 180MCG ONCE A WEEK SQ
     Route: 058
     Dates: start: 20100426
  3. LORCET-HD [Concomitant]
  4. XANAX [Concomitant]
  5. ZOLOFT [Concomitant]
  6. LIDODERM [Concomitant]
  7. BONIVA [Concomitant]

REACTIONS (3)
  - ECONOMIC PROBLEM [None]
  - PRESYNCOPE [None]
  - VISUAL IMPAIRMENT [None]
